FAERS Safety Report 6874997-4 (Version None)
Quarter: 2010Q3

REPORT INFORMATION
  Report Type: 
  Country: None (occurrence: None)
  Receive Date: 20100727
  Receipt Date: 20100719
  Transmission Date: 20110219
  Serious: Yes (Life-Threatening, Other)
  Sender: FDA-Public Use
  Company Number: US-AMGEN-QUU416911

PATIENT
  Sex: Male
  Weight: 91.7 kg

DRUGS (8)
  1. NPLATE [Suspect]
     Indication: IDIOPATHIC THROMBOCYTOPENIC PURPURA
     Route: 058
     Dates: start: 20090709, end: 20100506
  2. UNSPECIFIED ANTINEOPLASTIC AGENT [Concomitant]
  3. IMMU-G [Concomitant]
     Dates: start: 20050401, end: 20080228
  4. RITUXIMAB [Concomitant]
     Dates: start: 20080228, end: 20090625
  5. RITUXAN [Concomitant]
     Dates: start: 20100325, end: 20100617
  6. VINCRISTINE [Concomitant]
     Dates: start: 20100325, end: 20100617
  7. CYTOXAN [Concomitant]
     Dates: start: 20100325, end: 20100617
  8. PREDNISONE [Concomitant]
     Dates: start: 20100325, end: 20100617

REACTIONS (2)
  - LYMPHOMA [None]
  - THROMBOCYTOPENIA [None]
